FAERS Safety Report 7186079-5 (Version None)
Quarter: 2010Q4

REPORT INFORMATION
  Report Type: 
  Country: None (occurrence: None)
  Receive Date: 20101222
  Receipt Date: 20100614
  Transmission Date: 20110411
  Serious: Yes (Other)
  Sender: FDA-Public Use
  Company Number: US-AMGEN-KDL418480

PATIENT

DRUGS (5)
  1. ENBREL [Suspect]
     Indication: RHEUMATOID ARTHRITIS
     Dosage: 50 MG, QWK
     Route: 058
  2. IBUPROFEN [Concomitant]
     Dosage: UNK UNK, PRN
  3. ESCITALOPRAM OXALATE [Concomitant]
     Dosage: 10 MG, QD
  4. PREGABALIN [Concomitant]
     Dosage: 75 MG, UNK
  5. PREDNISONE [Concomitant]

REACTIONS (8)
  - DEPRESSION [None]
  - INJECTION SITE ERYTHEMA [None]
  - INJECTION SITE PAIN [None]
  - INJECTION SITE SWELLING [None]
  - MOOD ALTERED [None]
  - RHEUMATOID ARTHRITIS [None]
  - SINUSITIS [None]
  - THERAPEUTIC RESPONSE DECREASED [None]
